FAERS Safety Report 6013271-5 (Version None)
Quarter: 2008Q4

REPORT INFORMATION
  Report Type: 
  Country: None (occurrence: None)
  Receive Date: 20081219
  Receipt Date: 20081212
  Transmission Date: 20090506
  Serious: Yes (Other)
  Sender: FDA-Public Use
  Company Number: JP-AVENTIS-200813510JP

PATIENT
  Age: 78 Year
  Sex: Female

DRUGS (18)
  1. LANTUS [Suspect]
     Indication: DIABETES MELLITUS
     Dosage: DOSE: 4 UNITS
     Route: 058
     Dates: start: 20081104, end: 20081104
  2. LANTUS [Suspect]
     Dosage: DOSE: 12 UNITS
     Route: 058
     Dates: start: 20081105, end: 20081106
  3. NOVOLIN R [Concomitant]
     Indication: DIABETES MELLITUS
     Route: 041
     Dates: start: 20081031, end: 20081104
  4. NOVOLIN R [Concomitant]
     Route: 058
  5. NOVOLIN R [Concomitant]
     Route: 041
     Dates: start: 20081106
  6. TULOBUNIST [Concomitant]
     Dosage: DOSE: 1 SHEET PER DAY
     Dates: start: 20011121
  7. THEO SLOW [Concomitant]
     Route: 048
     Dates: start: 20050309
  8. VENETLIN [Concomitant]
     Route: 048
     Dates: start: 20050309
  9. PRANLUKAST [Concomitant]
     Route: 048
     Dates: start: 20050309
  10. TICLOPIDINE HCL [Concomitant]
     Indication: CEREBRAL INFARCTION
     Route: 048
     Dates: start: 20081121
  11. FLUTIDE [Concomitant]
     Route: 055
     Dates: start: 20050309
  12. SEREVENT [Concomitant]
     Route: 048
     Dates: start: 20050309
  13. AMPICILLIN SODIUM/SULBACTAM SODIUM [Concomitant]
     Indication: PNEUMONIA
     Route: 042
     Dates: start: 20081101
  14. BISOLVON                           /00004702/ [Concomitant]
     Indication: PNEUMONIA
     Route: 042
     Dates: start: 20081101
  15. ELIETEN                            /00041901/ [Concomitant]
     Indication: NAUSEA
     Dates: start: 20081031
  16. ORAL ANTIDIABETICS [Concomitant]
     Route: 048
     Dates: end: 20081030
  17. NOVORAPID [Concomitant]
     Dosage: DOSE: 6 UNITS
     Dates: start: 20081105, end: 20081106
  18. NOVORAPID [Concomitant]
     Dates: start: 20081120

REACTIONS (1)
  - HEPATIC FUNCTION ABNORMAL [None]
